FAERS Safety Report 13689995 (Version 4)
Quarter: 2017Q3

REPORT INFORMATION
  Report Type: Report from Study
  Country: DK (occurrence: DK)
  Receive Date: 20170626
  Receipt Date: 20170919
  Transmission Date: 20171127
  Serious: Yes (Hospitalization)
  Sender: FDA-Public Use
  Company Number: DK-NOVOPROD-549614

PATIENT
  Age: 28 Year
  Sex: Female
  Weight: 57.6 kg

DRUGS (7)
  1. KODEIN [Concomitant]
     Active Substance: CODEINE PHOSPHATE
     Indication: INSOMNIA
     Dosage: UNK
     Dates: start: 201706
  2. MORFIN                             /00036301/ [Concomitant]
     Active Substance: MORPHINE SULFATE
     Indication: PAIN
     Dosage: UNK
     Dates: start: 20170615
  3. FOLIC ACID. [Concomitant]
     Active Substance: FOLIC ACID
     Dosage: UNK
     Route: 065
  4. NOVORAPID [Suspect]
     Active Substance: INSULIN ASPART
     Indication: TYPE 1 DIABETES MELLITUS
     Dosage: 25 IE, QD
     Route: 058
     Dates: start: 2004
  5. LEVEMIR [Suspect]
     Active Substance: INSULIN DETEMIR
     Indication: TYPE 1 DIABETES MELLITUS
     Dosage: 49 IE, QD
     Route: 058
     Dates: start: 2006
  6. PAMOL [Concomitant]
     Active Substance: ACETAMINOPHEN
     Indication: PAIN
     Dosage: UNK
     Dates: start: 20170615
  7. HALCION [Concomitant]
     Active Substance: TRIAZOLAM
     Indication: INSOMNIA
     Dosage: UNK
     Dates: start: 201706

REACTIONS (4)
  - Diabetic ketoacidosis [Recovered/Resolved]
  - Threatened labour [Recovered/Resolved]
  - Diabetic ketoacidosis [Recovered/Resolved]
  - Exposure during pregnancy [Recovered/Resolved]

NARRATIVE: CASE EVENT DATE: 20161005
